FAERS Safety Report 22297644 (Version 5)
Quarter: 2023Q4

REPORT INFORMATION
  Report Type: Report from Study
  Country: DE (occurrence: DE)
  Receive Date: 20230509
  Receipt Date: 20231212
  Transmission Date: 20240109
  Serious: Yes (Hospitalization, Other)
  Sender: FDA-Public Use
  Company Number: DE-UCBSA-2023020902

PATIENT
  Sex: Female

DRUGS (17)
  1. SIMPONI [Suspect]
     Active Substance: GOLIMUMAB
     Indication: Product used for unknown indication
     Dosage: 50 MILLIGRAM
     Route: 058
     Dates: start: 202012, end: 202108
  2. METHOTREXATE SODIUM [Suspect]
     Active Substance: METHOTREXATE SODIUM
     Indication: Rheumatoid arthritis
     Dosage: 10 MILLIGRAM
     Route: 065
     Dates: start: 20160210
  3. METHOTREXATE SODIUM [Suspect]
     Active Substance: METHOTREXATE SODIUM
     Dosage: 10 MILLIGRAM
     Route: 065
     Dates: start: 20160901
  4. METHOTREXATE SODIUM [Suspect]
     Active Substance: METHOTREXATE SODIUM
     Dosage: 7.5 MILLIGRAM
     Route: 065
     Dates: start: 20210819
  5. METHOTREXATE SODIUM [Suspect]
     Active Substance: METHOTREXATE SODIUM
     Dosage: 10 MILLIGRAM
     Route: 065
     Dates: start: 20170427
  6. METHOTREXATE SODIUM [Suspect]
     Active Substance: METHOTREXATE SODIUM
     Dosage: 7.5 MILLIGRAM
     Route: 065
     Dates: start: 20210415
  7. METHOTREXATE SODIUM [Suspect]
     Active Substance: METHOTREXATE SODIUM
     Dosage: 12.5 MILLIGRAM
     Route: 065
     Dates: start: 20220921
  8. METHOTREXATE SODIUM [Suspect]
     Active Substance: METHOTREXATE SODIUM
     Dosage: 5 MILLIGRAM
     Route: 065
     Dates: start: 20150331
  9. METHOTREXATE SODIUM [Suspect]
     Active Substance: METHOTREXATE SODIUM
     Dosage: 10 MILLIGRAM
     Route: 065
     Dates: start: 20220301
  10. METHOTREXATE SODIUM [Suspect]
     Active Substance: METHOTREXATE SODIUM
     Route: 065
     Dates: start: 20150817
  11. METHOTREXATE SODIUM [Suspect]
     Active Substance: METHOTREXATE SODIUM
     Dosage: 5 MILLIGRAM
     Route: 065
     Dates: start: 20150623
  12. METHOTREXATE SODIUM [Suspect]
     Active Substance: METHOTREXATE SODIUM
     Dosage: UNK
     Route: 065
  13. HUMIRA [Suspect]
     Active Substance: ADALIMUMAB
     Indication: Product used for unknown indication
     Dosage: 40 MILLIGRAM
     Route: 065
     Dates: start: 202009, end: 202012
  14. HUMIRA [Suspect]
     Active Substance: ADALIMUMAB
     Dosage: 40 MILLIGRAM
     Route: 065
     Dates: start: 201805, end: 202007
  15. CERTOLIZUMAB PEGOL [Suspect]
     Active Substance: CERTOLIZUMAB PEGOL
     Indication: Rheumatoid arthritis
     Dosage: 200 MILLIGRAM
     Route: 065
     Dates: start: 202008, end: 202009
  16. TOCILIZUMAB [Suspect]
     Active Substance: TOCILIZUMAB
     Indication: Product used for unknown indication
     Dosage: 162 MILLIGRAM
     Route: 065
     Dates: start: 201503, end: 201611
  17. CIMZIA [Suspect]
     Active Substance: CERTOLIZUMAB PEGOL
     Indication: Rheumatoid arthritis
     Dosage: SOLUTION FOR INJECTION IN PRE-FILLED SYRINGE
     Route: 065
     Dates: start: 202008, end: 202009

REACTIONS (4)
  - Endometriosis [Unknown]
  - Menometrorrhagia [Not Recovered/Not Resolved]
  - Arthralgia [Recovered/Resolved]
  - Neck pain [Recovered/Resolved]

NARRATIVE: CASE EVENT DATE: 20220201
